FAERS Safety Report 23888045 (Version 3)
Quarter: 2025Q3

REPORT INFORMATION
  Report Type: Spontaneous
  Country: EU (occurrence: EU)
  Receive Date: 20240523
  Receipt Date: 20250802
  Transmission Date: 20251020
  Serious: Yes (Other)
  Sender: ALEXION PHARMACEUTICALS
  Company Number: None

PATIENT
  Age: 63 Year
  Sex: Female

DRUGS (8)
  1. TAGRISSO [Suspect]
     Active Substance: OSIMERTINIB
     Dosage: 1 COMP/DIA
     Dates: start: 20231212
  2. GLYCOPYRROLATE\INDACATEROL\MOMETASONE FUROATE [Concomitant]
     Active Substance: GLYCOPYRROLATE\INDACATEROL\MOMETASONE FUROATE
     Dosage: ENERZAIR BREEZHALER? 114 MCG/ 46 MCG/136 MCG DE MANH? ANTES DE SAIR (PNEUMOLOGIA)
  3. PANTOPRAZOLE SODIUM [Concomitant]
     Active Substance: PANTOPRAZOLE SODIUM
     Dosage: PANTOPRAZOLE 40 MG - 1 ID ON AN EMPTY STOMACH (DOCTOR OF FAMILY)
  4. FLUTICASONE FUROATE [Concomitant]
     Active Substance: FLUTICASONE FUROATE
  5. FLUTICASONE FUROATE [Concomitant]
     Active Substance: FLUTICASONE FUROATE
  6. FENOTEROL HYDROBROMIDE\IPRATROPIUM BROMIDE [Concomitant]
     Active Substance: FENOTEROL HYDROBROMIDE\IPRATROPIUM BROMIDE
  7. ESCITALOPRAM [Concomitant]
     Active Substance: ESCITALOPRAM OXALATE
  8. MONTELUKAST [Concomitant]
     Active Substance: MONTELUKAST

REACTIONS (7)
  - Oral mucosal erythema [Recovering/Resolving]
  - Haematoma [Not Recovered/Not Resolved]
  - Oral discomfort [Recovering/Resolving]
  - Lip erythema [Recovering/Resolving]
  - Oral discomfort [Recovering/Resolving]
  - Diarrhoea [Not Recovered/Not Resolved]
  - Haemoptysis [Recovered/Resolved]

NARRATIVE: CASE EVENT DATE: 20240126
